FAERS Safety Report 9114533 (Version 1)
Quarter: 2013Q1

REPORT INFORMATION
  Report Type: Spontaneous
  Country: DK (occurrence: DK)
  Receive Date: 20130128
  Receipt Date: 20130128
  Transmission Date: 20140127
  Serious: Yes (Other)
  Sender: FDA-Public Use
  Company Number: DK-ASTRAZENECA-2013SE04826

PATIENT
  Age: 558 Month
  Sex: Male

DRUGS (4)
  1. CARBOCAIN [Suspect]
     Indication: ARTHRALGIA
     Route: 052
     Dates: start: 20100713
  2. CARBOCAIN [Suspect]
     Indication: ARTHRALGIA
     Route: 052
     Dates: start: 201012
  3. DIPROSPAN [Suspect]
     Indication: ARTHRALGIA
     Route: 052
     Dates: start: 20100713
  4. DIPROSPAN [Suspect]
     Indication: ARTHRALGIA
     Route: 052
     Dates: start: 201012

REACTIONS (3)
  - Visual acuity reduced [Unknown]
  - Cataract [Unknown]
  - Vision blurred [Unknown]
